FAERS Safety Report 8053624-7 (Version None)
Quarter: 2012Q1

REPORT INFORMATION
  Report Type: 
  Country: None (occurrence: None)
  Receive Date: 20120118
  Receipt Date: 20120109
  Transmission Date: 20120608
  Serious: Yes (Hospitalization, Other)
  Sender: FDA-Public Use
  Company Number: US-BAYER-2010-000981

PATIENT
  Age: 26 Year
  Sex: Female
  Weight: 168 kg

DRUGS (3)
  1. VICODIN [Concomitant]
  2. YASMIN [Suspect]
     Dosage: UNK
     Dates: start: 20040701, end: 20050201
  3. SYNTHROID [Concomitant]

REACTIONS (3)
  - PANCREATITIS [None]
  - CHOLECYSTITIS CHRONIC [None]
  - CHOLELITHIASIS [None]
